FAERS Safety Report 7994417-6 (Version None)
Quarter: 2011Q4

REPORT INFORMATION
  Report Type: 
  Country: None (occurrence: None)
  Receive Date: 20111220
  Receipt Date: 20111216
  Transmission Date: 20120403
  Serious: Yes (Death)
  Sender: FDA-Public Use
  Company Number: JP-EISAI INC-E2020-10112-CLI-JP

PATIENT
  Sex: Male

DRUGS (9)
  1. DONEPEZIL HCL [Suspect]
     Indication: DEMENTIA WITH LEWY BODIES
     Dosage: DOUBLE-BLIND
     Route: 048
     Dates: start: 20111119, end: 20111202
  2. RABEPRAZOLE SODIUM [Concomitant]
     Indication: GASTRITIS PROPHYLAXIS
     Route: 048
     Dates: start: 20111118, end: 20110101
  3. FORSENID [Concomitant]
     Indication: CONSTIPATION
     Route: 048
     Dates: start: 20110528, end: 20110101
  4. WARFARIN SODIUM [Concomitant]
     Route: 048
     Dates: start: 20020629, end: 20110101
  5. TANATRIL [Concomitant]
     Indication: HYPERTENSION
     Route: 048
     Dates: start: 20060112, end: 20110101
  6. DONEPEZIL HCL [Suspect]
     Dosage: DOUBLE-BLIND
     Route: 048
     Dates: start: 20111203, end: 20111212
  7. AMLODIPINE [Concomitant]
     Indication: HYPERTENSION
     Route: 048
     Dates: start: 20111003, end: 20110101
  8. SUNRYTHM [Concomitant]
     Route: 048
     Dates: start: 20020629, end: 20110101
  9. PAXIL [Concomitant]
     Indication: DEPRESSION
     Route: 048
     Dates: start: 20090406, end: 20110101

REACTIONS (1)
  - MYOCARDIAL INFARCTION [None]
